FAERS Safety Report 9162167 (Version 1)
Quarter: 2013Q1

REPORT INFORMATION
  Report Type: Spontaneous
  Country: CA (occurrence: CA)
  Receive Date: 20130314
  Receipt Date: 20130314
  Transmission Date: 20140127
  Serious: Yes (Death)
  Sender: FDA-Public Use
  Company Number: PHHY2013CA024248

PATIENT
  Age: 64 Year
  Sex: Male

DRUGS (1)
  1. SANDOSTATIN LAR [Suspect]
     Indication: METASTATIC GASTRIC CANCER
     Dosage: 20 MG, ONCE A MONTH
     Route: 030
     Dates: start: 20130107, end: 20130204

REACTIONS (1)
  - Death [Fatal]
